FAERS Safety Report 24621686 (Version 1)
Quarter: 2024Q4

REPORT INFORMATION
  Report Type: Spontaneous
  Country: US (occurrence: US)
  Receive Date: 20241114
  Receipt Date: 20241114
  Transmission Date: 20250115
  Serious: No
  Sender: SANOFI AVENTIS
  Company Number: US-SA-2024SA324868

PATIENT
  Age: 67 Year
  Sex: Male

DRUGS (4)
  1. ELOCTATE [Suspect]
     Active Substance: EFMOROCTOCOG ALFA
     Indication: Factor VIII deficiency
     Dosage: 4620.000[IU] INTERNATION UNIT(S) BIW
     Route: 042
     Dates: start: 201912
  2. ELOCTATE [Suspect]
     Active Substance: EFMOROCTOCOG ALFA
     Indication: Factor VIII deficiency
     Dosage: 4620.000[IU] INTERNATION UNIT(S) BIW
     Route: 042
     Dates: start: 201912
  3. ELOCTATE [Suspect]
     Active Substance: EFMOROCTOCOG ALFA
     Dosage: 2310.000[IU] INTERNATION UNIT(S) PRN
     Route: 042
     Dates: start: 201912
  4. ELOCTATE [Suspect]
     Active Substance: EFMOROCTOCOG ALFA
     Dosage: 2310.000[IU] INTERNATION UNIT(S) PRN
     Route: 042
     Dates: start: 201912

REACTIONS (3)
  - Spontaneous haemorrhage [Unknown]
  - Injury [Unknown]
  - Traumatic haemorrhage [Recovered/Resolved]

NARRATIVE: CASE EVENT DATE: 20241017
